FAERS Safety Report 12808197 (Version 1)
Quarter: 2016Q4

REPORT INFORMATION
  Report Type: Report from Study
  Country: None (occurrence: AU)
  Receive Date: 20161004
  Receipt Date: 20161004
  Transmission Date: 20170207
  Serious: Yes (Hospitalization, Other)
  Sender: FDA-Public Use
  Company Number: AU-ABBVIE-16P-008-1743551-00

PATIENT
  Age: 72 Year
  Sex: Male

DRUGS (1)
  1. LUCRIN DEPOT [Suspect]
     Active Substance: LEUPROLIDE ACETATE
     Indication: PROSTATE CANCER
     Route: 050

REACTIONS (2)
  - Neoplasm malignant [Unknown]
  - Blood urine present [Unknown]

NARRATIVE: CASE EVENT DATE: 2016
